FAERS Safety Report 13323851 (Version 1)
Quarter: 2017Q1

REPORT INFORMATION
  Report Type: Spontaneous
  Country: US (occurrence: US)
  Receive Date: 20170310
  Receipt Date: 20170310
  Transmission Date: 20170428
  Serious: Yes (Hospitalization, Other)
  Sender: FDA-Public Use
  Company Number: US-ELI_LILLY_AND_COMPANY-US201607006104

PATIENT
  Sex: Male
  Weight: 88.44 kg

DRUGS (5)
  1. CYMBALTA [Suspect]
     Active Substance: DULOXETINE HYDROCHLORIDE
     Indication: DEPRESSION
     Dosage: 60 MG, BID
     Route: 048
     Dates: end: 20120620
  2. CYMBALTA [Suspect]
     Active Substance: DULOXETINE HYDROCHLORIDE
     Indication: ANXIETY
     Dosage: 60 MG, BID
     Route: 048
     Dates: start: 20120726
  3. OPANA [Concomitant]
     Active Substance: OXYMORPHONE HYDROCHLORIDE
     Indication: PAIN
     Dosage: 20 MG, BID
     Route: 048
  4. CYMBALTA [Suspect]
     Active Substance: DULOXETINE HYDROCHLORIDE
     Indication: PAIN
     Dosage: UNK, UNKNOWN
     Route: 065
     Dates: start: 201109
  5. OXYCODONE [Concomitant]
     Active Substance: OXYCODONE
     Indication: PAIN
     Dosage: 30 MG, QID
     Route: 048

REACTIONS (19)
  - Vertigo [Unknown]
  - Anhedonia [Unknown]
  - Drug withdrawal syndrome [Unknown]
  - Insomnia [Unknown]
  - Suicidal ideation [Unknown]
  - Homicidal ideation [Unknown]
  - Affect lability [Unknown]
  - Diarrhoea [Unknown]
  - Irritability [Unknown]
  - Dysphoria [Unknown]
  - Confusional state [Unknown]
  - Anxiety [Unknown]
  - Sensory disturbance [Unknown]
  - Agitation [Unknown]
  - Disturbance in attention [Unknown]
  - Vomiting [Unknown]
  - Nausea [Unknown]
  - Hypomania [Unknown]
  - Fatigue [Unknown]
